FAERS Safety Report 20860112 (Version 1)
Quarter: 2022Q2

REPORT INFORMATION
  Report Type: Spontaneous
  Country: US (occurrence: None)
  Receive Date: 20220520
  Receipt Date: 20220520
  Transmission Date: 20220721
  Serious: Yes (Hospitalization)
  Sender: FDA-Public Use
  Company Number: None

PATIENT
  Age: 53 Year
  Sex: Male
  Weight: 72 kg

DRUGS (8)
  1. NIRMATRELVIR\RITONAVIR [Suspect]
     Active Substance: NIRMATRELVIR\RITONAVIR
     Indication: COVID-19
     Dosage: 3 TOT - TOTAL TWICE A DAY ?
     Dates: start: 20220510, end: 20220514
  2. tacrolimus total dose 2.5 mg am/2.5 mg pm [Concomitant]
  3. everolimus 2 mg in the am and 2 mg at night [Concomitant]
  4. alirocumab Inject 75 mg under the skin every 14 (fourteen) days [Concomitant]
  5. ASPIRIN [Concomitant]
     Active Substance: ASPIRIN
  6. dapsone  (50 mg total) by mouth 3 (three) times a week on Mond [Concomitant]
  7. gabapentin 200 mg po bid [Concomitant]
  8. propranolol LA 80 mg daily [Concomitant]

REACTIONS (6)
  - Pyrexia [None]
  - Oropharyngeal pain [None]
  - Headache [None]
  - Chest pain [None]
  - Diarrhoea [None]
  - Productive cough [None]

NARRATIVE: CASE EVENT DATE: 20220518
